FAERS Safety Report 6401706-5 (Version None)
Quarter: 2009Q4

REPORT INFORMATION
  Report Type: 
  Country: None (occurrence: None)
  Receive Date: 20091015
  Receipt Date: 20091007
  Transmission Date: 20100525
  Serious: Yes (Hospitalization)
  Sender: FDA-Public Use
  Company Number: GB-GENENTECH-290906

PATIENT
  Sex: Female
  Weight: 51 kg

DRUGS (3)
  1. HERCEPTIN [Suspect]
     Indication: BREAST CANCER
     Dosage: 304 MG, Q3W
     Route: 042
     Dates: start: 20081101, end: 20090909
  2. ACE-INHIBITOR [Suspect]
     Indication: ACUTE CORONARY SYNDROME
     Route: 065
  3. BETA-BLOCKER [Concomitant]
     Indication: DRUG USE FOR UNKNOWN INDICATION
     Dosage: UNK

REACTIONS (3)
  - ACUTE CORONARY SYNDROME [None]
  - HYPOTENSION [None]
  - MYOCARDITIS [None]
